FAERS Safety Report 9626792 (Version 1)
Quarter: 2013Q4

REPORT INFORMATION
  Report Type: Spontaneous
  Country: DE (occurrence: DE)
  Receive Date: 20131016
  Receipt Date: 20131016
  Transmission Date: 20140711
  Serious: Yes (Hospitalization)
  Sender: FDA-Public Use
  Company Number: DE-GLAXOSMITHKLINE-D0081367A

PATIENT
  Age: 40 Year
  Sex: Female

DRUGS (3)
  1. LAMICTAL [Suspect]
     Dosage: 200MG TWICE PER DAY
     Route: 048
  2. AZATHIOPRINE [Suspect]
     Route: 065
  3. PREDNISOLON [Suspect]
     Route: 065

REACTIONS (1)
  - Ventricular fibrillation [Unknown]
